FAERS Safety Report 12167438 (Version 2)
Quarter: 2017Q1

REPORT INFORMATION
  Report Type: Spontaneous
  Country: US (occurrence: US)
  Receive Date: 20160310
  Receipt Date: 20170110
  Transmission Date: 20170428
  Serious: No
  Sender: FDA-Public Use
  Company Number: US-PFIZER INC-2016131972

PATIENT
  Age: 52 Year
  Sex: Female

DRUGS (1)
  1. SUMATRIPTAN SUCCINATE. [Suspect]
     Active Substance: SUMATRIPTAN SUCCINATE
     Dosage: UNK

REACTIONS (3)
  - Contrast media allergy [Unknown]
  - Food allergy [Unknown]
  - Drug hypersensitivity [Unknown]
